FAERS Safety Report 6240940-4 (Version None)
Quarter: 2009Q2

REPORT INFORMATION
  Report Type: 
  Country: None (occurrence: None)
  Receive Date: 20090623
  Receipt Date: 20090611
  Transmission Date: 20091009
  Serious: Yes (Other)
  Sender: FDA-Public Use
  Company Number: US-AVENTIS-200916057GDDC

PATIENT
  Age: 74 Year
  Sex: Male
  Weight: 59.8 kg

DRUGS (11)
  1. TAXOTERE [Suspect]
     Route: 042
     Dates: start: 20071204, end: 20080627
  2. ELIGARD [Suspect]
     Route: 058
     Dates: start: 20071204, end: 20090302
  3. CASODEX [Suspect]
     Route: 048
     Dates: start: 20071204, end: 20080107
  4. IRON [Concomitant]
     Dosage: DOSE: UNK
  5. ASPIRIN [Concomitant]
     Dosage: DOSE: UNK
  6. METFORMIN HCL [Concomitant]
     Dosage: DOSE: UNK
  7. OMEPRAZOLE [Concomitant]
     Dosage: DOSE: UNK
  8. SIMVASTATIN [Concomitant]
     Dosage: DOSE: UNK
  9. ENALAPRIL [Concomitant]
     Dosage: DOSE: UNK
  10. AMLODIPINE [Concomitant]
     Dosage: DOSE: UNK
  11. GLIPIZIDE [Concomitant]
     Dosage: DOSE: UNK

REACTIONS (2)
  - OESOPHAGEAL ADENOCARCINOMA [None]
  - OESOPHAGEAL ADENOCARCINOMA STAGE III [None]
